FAERS Safety Report 18305634 (Version 1)
Quarter: 2020Q3

REPORT INFORMATION
  Report Type: Spontaneous
  Country: US (occurrence: US)
  Receive Date: 20200923
  Receipt Date: 20200923
  Transmission Date: 20201103
  Serious: Yes (Hospitalization, Other)
  Sender: FDA-Public Use
  Company Number: US-OTSUKA-2020_022770

PATIENT

DRUGS (5)
  1. DECITABINE. [Suspect]
     Active Substance: DECITABINE
     Dosage: 20 MG/M2, FOR 5 DAYS PER CYCLE
     Route: 042
  2. DECITABINE. [Suspect]
     Active Substance: DECITABINE
     Indication: ACUTE MYELOID LEUKAEMIA
     Dosage: 20 MG/M2 ON DAYS 1?10 OF INDUCTION
     Route: 042
  3. VENETOCLAX. [Suspect]
     Active Substance: VENETOCLAX
     Dosage: 400 MG, ON DAY 3?28 CYCLE 1
     Route: 065
  4. VENETOCLAX. [Suspect]
     Active Substance: VENETOCLAX
     Dosage: 200 MG, ON DAY2
     Route: 065
  5. VENETOCLAX. [Suspect]
     Active Substance: VENETOCLAX
     Indication: ACUTE MYELOID LEUKAEMIA
     Dosage: 100 MG, ON DAY1
     Route: 065

REACTIONS (1)
  - Tumour lysis syndrome [Recovered/Resolved]
